FAERS Safety Report 8352493-5 (Version None)
Quarter: 2012Q2

REPORT INFORMATION
  Report Type: 
  Country: None (occurrence: None)
  Receive Date: 20120511
  Receipt Date: 20120507
  Transmission Date: 20120825
  Serious: Yes (Life-Threatening, Hospitalization, Disabling)
  Sender: FDA-Public Use
  Company Number: PHHO2012FR007073

PATIENT
  Sex: Female

DRUGS (7)
  1. BLINDED RIVASTIGMIN [Suspect]
     Indication: CONFUSIONAL STATE
     Dosage: UNK
     Route: 062
     Dates: end: 20111107
  2. ATACAND [Concomitant]
     Indication: HYPERTENSION
     Dosage: 8 MG, QD
     Route: 048
     Dates: start: 20111027
  3. PLACEBO [Suspect]
     Indication: CONFUSIONAL STATE
     Dosage: UNK
     Route: 062
     Dates: end: 20111107
  4. BLINDED NO TREATMENT RECEIVED [Suspect]
     Indication: CONFUSIONAL STATE
     Dosage: UNK
     Route: 062
     Dates: end: 20111107
  5. ACETYLSALICYLIC ACID SRT [Suspect]
     Dosage: 100 MG, UNK
     Route: 048
     Dates: start: 20111027, end: 20111107
  6. CALCIPARINE [Suspect]
     Indication: BEDRIDDEN
     Dosage: 5000 IU, BID
     Route: 058
     Dates: start: 20111027, end: 20111107
  7. GLUCOSE [Concomitant]
     Indication: DEHYDRATION
     Dosage: 500 ML, QD
     Route: 058
     Dates: start: 20111027, end: 20111107

REACTIONS (1)
  - CEREBROVASCULAR ACCIDENT [None]
